FAERS Safety Report 5703964-9 (Version None)
Quarter: 2008Q2

REPORT INFORMATION
  Report Type: 
  Country: None (occurrence: None)
  Receive Date: 20080414
  Receipt Date: 20080401
  Transmission Date: 20081010
  Serious: Yes (Hospitalization)
  Sender: FDA-Public Use
  Company Number: US-BRISTOL-MYERS SQUIBB COMPANY-13876875

PATIENT
  Age: 73 Year
  Sex: Female
  Weight: 80 kg

DRUGS (15)
  1. CYCLOPHOSPHAMIDE [Suspect]
     Indication: DIFFUSE LARGE B-CELL LYMPHOMA
     Dosage: LAST DOSE RECEIVED ON 11-SEP-2007.
     Route: 042
     Dates: start: 20070724, end: 20070724
  2. DOXORUBICIN HCL [Suspect]
     Indication: DIFFUSE LARGE B-CELL LYMPHOMA
     Dosage: LAST DOSE RECEIVED ON 11-SEP-2007.
     Route: 042
     Dates: start: 20070724, end: 20070724
  3. ENZASTAURIN [Suspect]
     Indication: DIFFUSE LARGE B-CELL LYMPHOMA
     Dosage: INITIAL DOSE-1125MG(1/D) PO 25JUL07; LAST DOSE 500 MG(1/D) 11-SEP-2007.
     Route: 048
     Dates: start: 20070726
  4. VINCRISTINE [Suspect]
     Indication: DIFFUSE LARGE B-CELL LYMPHOMA
     Dosage: LAST DOSE ADMINISTERED ON 11-SEP-2007.
     Route: 042
     Dates: start: 20070724, end: 20070724
  5. PREDNISONE [Suspect]
     Indication: DIFFUSE LARGE B-CELL LYMPHOMA
     Dosage: LAST DOSE ADMINISTERED ON 15-SEP-2007.
     Route: 048
     Dates: start: 20070724
  6. RITUXIMAB [Suspect]
     Indication: DIFFUSE LARGE B-CELL LYMPHOMA
     Dosage: LAST DOSE ADMINISTERED ON 11-SEP-2007.
     Route: 042
     Dates: start: 20070724, end: 20070724
  7. ATACAND [Concomitant]
  8. DARVOCET [Concomitant]
  9. SYNTHROID [Concomitant]
  10. MULTI-VITAMIN [Concomitant]
  11. IBUPROFEN [Concomitant]
  12. TYLENOL (CAPLET) [Concomitant]
  13. COMPAZINE [Concomitant]
     Dates: start: 20070624
  14. MIRALAX [Concomitant]
     Dates: start: 20070730
  15. SENOKOT [Concomitant]
     Dates: start: 20070801, end: 20070802

REACTIONS (5)
  - ANOREXIA [None]
  - ASTHENIA [None]
  - FEBRILE NEUTROPENIA [None]
  - GAIT DISTURBANCE [None]
  - ORAL CANDIDIASIS [None]
